FAERS Safety Report 14582698 (Version 1)
Quarter: 2018Q1

REPORT INFORMATION
  Report Type: Spontaneous
  Country: IT (occurrence: IT)
  Receive Date: 20180228
  Receipt Date: 20180228
  Transmission Date: 20180509
  Serious: Yes (Death)
  Sender: FDA-Public Use
  Company Number: IT-BAYER-2018-032705

PATIENT
  Age: 76 Year
  Sex: Female

DRUGS (1)
  1. NEXAVAR [Suspect]
     Active Substance: SORAFENIB
     Indication: HEPATOCELLULAR CARCINOMA
     Dosage: 800 MG, DAILY
     Route: 048
     Dates: start: 20080902, end: 20080910

REACTIONS (12)
  - Hepatic failure [Fatal]
  - Diarrhoea [Fatal]
  - Upper limb fracture [Fatal]
  - Varicose vein [Fatal]
  - Skin ulcer [Fatal]
  - Fall [Fatal]
  - Alopecia [Fatal]
  - Pyrexia [Fatal]
  - Pain in extremity [Fatal]
  - Femur fracture [Fatal]
  - Psoriasis [Fatal]
  - Hypertension [Fatal]

NARRATIVE: CASE EVENT DATE: 20080911
